FAERS Safety Report 15044730 (Version 1)
Quarter: 2018Q2

REPORT INFORMATION
  Report Type: Report from Study
  Country: JP (occurrence: JP)
  Receive Date: 20180621
  Receipt Date: 20180621
  Transmission Date: 20180711
  Serious: Yes (Death, Other)
  Sender: FDA-Public Use
  Company Number: JP-ASTRAZENECA-2018SE80505

PATIENT
  Age: 68 Year
  Sex: Female
  Weight: 45 kg

DRUGS (7)
  1. OXINORM [Concomitant]
     Indication: RHINITIS ALLERGIC
     Dosage: AS REQUIRED
     Route: 048
     Dates: start: 20170315
  2. MAGNESIUM OXIDE. [Concomitant]
     Active Substance: MAGNESIUM OXIDE
     Indication: RHINITIS ALLERGIC
     Route: 048
     Dates: start: 20170315
  3. PARIET [Concomitant]
     Active Substance: RABEPRAZOLE SODIUM
     Indication: PROPHYLAXIS
     Route: 048
     Dates: start: 20170315
  4. CELECOX [Concomitant]
     Active Substance: CELECOXIB
     Indication: RHINITIS ALLERGIC
     Route: 048
     Dates: start: 20170315
  5. TAGRISSO [Suspect]
     Active Substance: OSIMERTINIB
     Indication: NON-SMALL CELL LUNG CANCER
     Route: 048
     Dates: start: 20170311, end: 20170315
  6. ROZEREM [Concomitant]
     Active Substance: RAMELTEON
     Indication: IRRITABLE BOWEL SYNDROME
     Route: 048
     Dates: start: 20170315
  7. XYZAL [Concomitant]
     Active Substance: LEVOCETIRIZINE DIHYDROCHLORIDE
     Indication: RHINITIS ALLERGIC
     Route: 048
     Dates: start: 20170315

REACTIONS (2)
  - Disease progression [Fatal]
  - Cerebral infarction [Not Recovered/Not Resolved]

NARRATIVE: CASE EVENT DATE: 20170316
